FAERS Safety Report 9189453 (Version 2)
Quarter: 2013Q2

REPORT INFORMATION
  Report Type: Report from Study
  Country: US (occurrence: US)
  Receive Date: 20130326
  Receipt Date: 20130514
  Transmission Date: 20140414
  Serious: Yes (Death, Other)
  Sender: FDA-Public Use
  Company Number: PHEH2013US006874

PATIENT
  Age: 90 Year
  Sex: Female

DRUGS (1)
  1. RECLAST [Suspect]
     Dosage: UNK
     Route: 042
     Dates: start: 20101228

REACTIONS (4)
  - Death [Fatal]
  - Cerebral haemorrhage [Unknown]
  - Hip fracture [Unknown]
  - Fall [Unknown]
